FAERS Safety Report 8012977-6 (Version None)
Quarter: 2011Q4

REPORT INFORMATION
  Report Type: 
  Country: None (occurrence: None)
  Receive Date: 20111223
  Receipt Date: 20111214
  Transmission Date: 20120403
  Serious: Yes (Death)
  Sender: FDA-Public Use
  Company Number: ADR-2011-11803

PATIENT
  Sex: Female

DRUGS (2)
  1. BACLOFEN [Suspect]
     Indication: MUSCLE SPASTICITY
     Dosage: , INTRATH.
     Route: 037
  2. BACLOFEN [Suspect]
     Indication: CEREBROVASCULAR ACCIDENT
     Dosage: , INTRATH.
     Route: 037

REACTIONS (2)
  - FAILURE TO THRIVE [None]
  - CARDIOPULMONARY FAILURE [None]
